FAERS Safety Report 4283126-5 (Version None)
Quarter: 2004Q1

REPORT INFORMATION
  Report Type: 
  Country: None (occurrence: None)
  Receive Date: 20040127
  Receipt Date: 20040108
  Transmission Date: 20041129
  Serious: Yes (Death)
  Sender: FDA-Public Use
  Company Number: 233680

PATIENT
  Age: 64 Year
  Sex: Male
  Weight: 72 kg

DRUGS (9)
  1. NOVOSEVEN [Suspect]
     Indication: CEREBRAL HAEMORRHAGE
     Dosage: 40 UG, KG, SINGLE, INTRAVENOUS
     Route: 042
     Dates: start: 20031020, end: 20031020
  2. OMEPRAZOLE [Concomitant]
  3. METOPROLOL TARTRATE [Concomitant]
  4. CELEBRA ^PFIZER^ (CELECOXIB) [Concomitant]
  5. TRANDATE [Concomitant]
  6. FRAGMIN [Concomitant]
  7. SODIUM CHLORIDE 0.9% [Concomitant]
  8. DOLCONTIN (MORPHNIE SULFATE) [Concomitant]
  9. ACETAMINOPHEN [Concomitant]

REACTIONS (4)
  - GENERAL PHYSICAL HEALTH DETERIORATION [None]
  - PNEUMONIA [None]
  - RENAL FAILURE ACUTE [None]
  - TROPONIN T INCREASED [None]
